FAERS Safety Report 11705407 (Version 2)
Quarter: 2015Q4

REPORT INFORMATION
  Report Type: Spontaneous
  Country: GB (occurrence: GB)
  Receive Date: 20151106
  Receipt Date: 20151229
  Transmission Date: 20160304
  Serious: Yes (Hospitalization)
  Sender: FDA-Public Use
  Company Number: PHHY2015GB140223

PATIENT
  Age: 4 Month
  Sex: Female
  Weight: 2.68 kg

DRUGS (10)
  1. OMEPRAZOLE. [Suspect]
     Active Substance: OMEPRAZOLE
     Indication: EXPOSURE DURING PREGNANCY
     Route: 064
  2. TAPENTADOL [Suspect]
     Active Substance: TAPENTADOL
     Indication: EXPOSURE DURING PREGNANCY
     Dosage: 100 MG
     Route: 064
  3. OMEPRAZOLE. [Suspect]
     Active Substance: OMEPRAZOLE
     Route: 064
  4. AZATHIOPRINE. [Suspect]
     Active Substance: AZATHIOPRINE
     Indication: EXPOSURE DURING PREGNANCY
     Route: 064
  5. CO-DYDRAMOL [Suspect]
     Active Substance: ACETAMINOPHEN\DIHYDROCODEINE
     Indication: EXPOSURE DURING PREGNANCY
     Dosage: STRENGTH: 10/500
     Route: 064
  6. ESCITALOPRAM [Suspect]
     Active Substance: ESCITALOPRAM OXALATE
     Indication: EXPOSURE DURING PREGNANCY
     Route: 064
  7. ORAMORPH [Suspect]
     Active Substance: MORPHINE SULFATE
     Indication: EXPOSURE DURING PREGNANCY
     Dosage: 15 MG, UNK
     Route: 064
  8. ORAMORPH [Suspect]
     Active Substance: MORPHINE SULFATE
     Dosage: UNK
     Route: 065
     Dates: start: 20150523, end: 20150601
  9. OMEPRAZOLE. [Suspect]
     Active Substance: OMEPRAZOLE
     Route: 064
  10. DAKTARIN//MICONAZOLE NITRATE [Concomitant]
     Indication: PRODUCT USED FOR UNKNOWN INDICATION
     Route: 065

REACTIONS (2)
  - Drug withdrawal syndrome neonatal [Unknown]
  - Sepsis neonatal [Unknown]
